FAERS Safety Report 9285574 (Version 2)
Quarter: 2013Q4

REPORT INFORMATION
  Report Type: Report from Study
  Country: BR (occurrence: BR)
  Receive Date: 20130513
  Receipt Date: 20131024
  Transmission Date: 20140711
  Serious: No
  Sender: FDA-Public Use
  Company Number: BR-US-EMD SERONO, INC.-7208975

PATIENT
  Sex: Female

DRUGS (4)
  1. REBIF [Suspect]
     Indication: MULTIPLE SCLEROSIS
     Dates: start: 20090901
  2. RIVOTRIL [Concomitant]
     Indication: DEPRESSION
  3. IMIPRAMINE [Concomitant]
     Indication: DEPRESSION
  4. RISPERIDONE [Concomitant]
     Indication: DEPRESSION

REACTIONS (3)
  - Pain in extremity [Not Recovered/Not Resolved]
  - Balance disorder [Not Recovered/Not Resolved]
  - Fatigue [Not Recovered/Not Resolved]
